FAERS Safety Report 17371496 (Version 1)
Quarter: 2020Q1

REPORT INFORMATION
  Report Type: Spontaneous
  Country: PL (occurrence: PL)
  Receive Date: 20200205
  Receipt Date: 20200205
  Transmission Date: 20200409
  Serious: Yes (Hospitalization, Other)
  Sender: FDA-Public Use
  Company Number: PL-BION-008532

PATIENT
  Age: 22 Year
  Sex: Male

DRUGS (3)
  1. VALPROIC ACID. [Suspect]
     Active Substance: VALPROIC ACID
     Indication: PSYCHOTIC SYMPTOM
     Dosage: 600 MG TWO TIMES A DAY
  2. RISPERIDONE. [Concomitant]
     Active Substance: RISPERIDONE
     Indication: PSYCHOTIC SYMPTOM
     Dosage: TAPERED TO 4 MG/DAY ON THE 15TH DAY OF THERAPY, REDUCED TO 1 MG THREE TIMES A DAY
  3. CLOZAPINE. [Suspect]
     Active Substance: CLOZAPINE
     Indication: PSYCHOTIC SYMPTOM
     Dosage: TITRATED UP TO 100 MG/DAY ON DAY 15 AND LATER LOWERED TO 50 MG AND THEN WITHDRAWN

REACTIONS (1)
  - Myocarditis [Recovered/Resolved]
